FAERS Safety Report 8300035-2 (Version None)
Quarter: 2012Q2

REPORT INFORMATION
  Report Type: 
  Country: None (occurrence: None)
  Receive Date: 20120417
  Receipt Date: 20120403
  Transmission Date: 20120825
  Serious: Yes (Hospitalization)
  Sender: FDA-Public Use
  Company Number: 2012MA003402

PATIENT
  Age: 28 Year
  Sex: Female

DRUGS (1)
  1. DOXYCYCLINE HYCLATE [Suspect]
     Dosage: 100MG; PO
     Route: 048

REACTIONS (4)
  - OESOPHAGEAL PAIN [None]
  - FOREIGN BODY [None]
  - OESOPHAGEAL ULCER [None]
  - BURN OESOPHAGEAL [None]
